FAERS Safety Report 21527044 (Version 3)
Quarter: 2022Q4

REPORT INFORMATION
  Report Type: Report from Study
  Country: US (occurrence: None)
  Receive Date: 20221031
  Receipt Date: 20221221
  Transmission Date: 20230113
  Serious: Yes (Other)
  Sender: FDA-Public Use
  Company Number: US-Merck Healthcare KGaA-9361337

PATIENT
  Sex: Female

DRUGS (1)
  1. REBIF [Suspect]
     Active Substance: INTERFERON BETA-1A
     Indication: Multiple sclerosis
     Dosage: PREVIOUSLY REBIDOSE
     Route: 058
     Dates: start: 20200903

REACTIONS (3)
  - Nephrolithiasis [Recovering/Resolving]
  - Ureterolithiasis [Recovering/Resolving]
  - Dehydration [Unknown]
